FAERS Safety Report 9772079 (Version 11)
Quarter: 2014Q4

REPORT INFORMATION
  Report Type: Report from Study
  Country: US (occurrence: US)
  Receive Date: 20131219
  Receipt Date: 20141001
  Transmission Date: 20150529
  Serious: Yes (Hospitalization)
  Sender: FDA-Public Use
  Company Number: US-JNJFOC-20131209125

PATIENT
  Age: 9 Year
  Sex: Female
  Weight: 25.4 kg

DRUGS (2)
  1. REMICADE [Suspect]
     Active Substance: INFLIXIMAB
     Indication: INFLAMMATORY BOWEL DISEASE
     Route: 042
     Dates: start: 20130731
  2. REMICADE [Suspect]
     Active Substance: INFLIXIMAB
     Indication: INFLAMMATORY BOWEL DISEASE
     Dosage: LAST INFUSION WAS IN END OF OCTOBER.
     Route: 042
     Dates: start: 20130314

REACTIONS (1)
  - Osteomyelitis chronic [Recovered/Resolved]

NARRATIVE: CASE EVENT DATE: 20131203
